FAERS Safety Report 6705378-1 (Version None)
Quarter: 2010Q2

REPORT INFORMATION
  Report Type: 
  Country: None (occurrence: None)
  Receive Date: 20100503
  Receipt Date: 20100423
  Transmission Date: 20101027
  Serious: Yes (Hospitalization)
  Sender: FDA-Public Use
  Company Number: US-BIOGENIDEC-2010BI011577

PATIENT
  Age: 37 Year
  Sex: Male

DRUGS (1)
  1. TYSABRI [Suspect]
     Indication: MULTIPLE SCLEROSIS
     Route: 042
     Dates: start: 20070412

REACTIONS (6)
  - CULTURE URINE POSITIVE [None]
  - DYSSTASIA [None]
  - SEPSIS [None]
  - SPEECH DISORDER [None]
  - URINARY TRACT INFECTION [None]
  - UROSEPSIS [None]
